FAERS Safety Report 4468863-1 (Version None)
Quarter: 2004Q4

REPORT INFORMATION
  Report Type: 
  Country: None (occurrence: None)
  Receive Date: 20041001
  Receipt Date: 20040914
  Transmission Date: 20050328
  Serious: Yes (Other)
  Sender: FDA-Public Use
  Company Number: 8886

PATIENT
  Age: 13 Year
  Sex: Male

DRUGS (3)
  1. METHOTREXATE [Suspect]
     Indication: ACUTE LYMPHOCYTIC LEUKAEMIA
     Dosage: 785 MG ONCE IV
     Route: 042
     Dates: start: 20040830, end: 20040830
  2. METHOTREXATE [Suspect]
     Indication: ACUTE LYMPHOCYTIC LEUKAEMIA
     Dosage: 7065 MG ONCE IV
     Route: 042
     Dates: start: 20040830, end: 20040830
  3. MERCAPTOPURINE [Concomitant]

REACTIONS (1)
  - NEUROTOXICITY [None]
